FAERS Safety Report 9742729 (Version 1)
Quarter: 2013Q4

REPORT INFORMATION
  Report Type: Spontaneous
  Country: US (occurrence: US)
  Receive Date: 20131210
  Receipt Date: 20131210
  Transmission Date: 20140711
  Serious: No
  Sender: FDA-Public Use
  Company Number: US-GILEAD-2009-0025851

PATIENT
  Sex: Female
  Weight: 131.54 kg

DRUGS (21)
  1. LETAIRIS [Suspect]
     Indication: PULMONARY ARTERIAL HYPERTENSION
     Route: 048
     Dates: start: 20091113
  2. DARVOCET-N [Concomitant]
  3. HUMALOG [Concomitant]
  4. SINGULAIR [Concomitant]
  5. ZOCOR [Concomitant]
  6. XANAX [Concomitant]
  7. AMBIEN [Concomitant]
  8. LOPRESSOR [Concomitant]
  9. REGLAN [Concomitant]
  10. LASIX [Concomitant]
  11. NORVASC [Concomitant]
  12. REVATIO [Concomitant]
  13. DIOVAN [Concomitant]
  14. ALLEGRA-D 12 HOUR [Concomitant]
  15. ASPIRIN [Concomitant]
  16. FLONASE [Concomitant]
  17. PROZAC [Concomitant]
  18. XOPENEX HFA [Concomitant]
  19. PLAVIX [Concomitant]
  20. COLACE T [Concomitant]
  21. PROTONIX [Concomitant]

REACTIONS (2)
  - Oedema [Unknown]
  - Headache [Unknown]
